FAERS Safety Report 26039304 (Version 1)
Quarter: 2025Q4

REPORT INFORMATION
  Report Type: Spontaneous
  Country: EU (occurrence: EU)
  Receive Date: 20251113
  Receipt Date: 20251113
  Transmission Date: 20260117
  Serious: Yes (Hospitalization)
  Sender: SANDOZ
  Company Number: EU-MINISAL02-1064763

PATIENT
  Age: 66 Year
  Sex: Female

DRUGS (5)
  1. BEVACIZUMAB [Suspect]
     Active Substance: BEVACIZUMAB
     Indication: Colon cancer
     Dosage: 360 MG
     Route: 042
     Dates: start: 20250124, end: 20250124
  2. FLUOROURACIL [Suspect]
     Active Substance: FLUOROURACIL
     Dosage: 318 MG (DRUG ADMINISTERED AS A 46-HOUR INFUSION)
     Route: 042
     Dates: start: 20250124, end: 20250126
  3. FLUOROURACIL [Suspect]
     Active Substance: FLUOROURACIL
     Indication: Colon cancer
     Dosage: 518 MG (DRUG ADMINISTERED AS INTRAVENOUS BOLUS)
     Route: 042
     Dates: start: 20250124, end: 20250124
  4. OXALIPLATIN [Suspect]
     Active Substance: OXALIPLATIN
     Indication: Colon cancer
     Dosage: 111 MG
     Route: 042
     Dates: start: 20250124, end: 20250124
  5. LEVOLEUCOVORIN [Concomitant]
     Active Substance: LEVOLEUCOVORIN
     Indication: Product used for unknown indication
     Dosage: 296 MG
     Route: 042
     Dates: start: 20250124, end: 20250124

REACTIONS (2)
  - Band sensation [Recovered/Resolved]
  - Swollen tongue [Recovered/Resolved]

NARRATIVE: CASE EVENT DATE: 20250125
